FAERS Safety Report 12858661 (Version 1)
Quarter: 2016Q4

REPORT INFORMATION
  Report Type: Spontaneous
  Country: JP (occurrence: JP)
  Receive Date: 20161018
  Receipt Date: 20161018
  Transmission Date: 20170207
  Serious: Yes (Death, Hospitalization)
  Sender: FDA-Public Use
  Company Number: JP-DSJP-DSJ-2016-107216

PATIENT

DRUGS (8)
  1. LANIRAPID [Concomitant]
     Active Substance: METILDIGOXIN
     Dosage: 0.05 MG, QD
     Route: 048
  2. LIXIANA TABLETS [Suspect]
     Active Substance: EDOXABAN TOSILATE MONOHYDRATE
     Indication: ATRIAL FIBRILLATION
     Dosage: 30 MG, QD
     Route: 048
     Dates: start: 20160206, end: 20160213
  3. LIXIANA TABLETS [Suspect]
     Active Substance: EDOXABAN TOSILATE MONOHYDRATE
     Dosage: 30 MG, QD
     Route: 065
     Dates: start: 20160219, end: 20160224
  4. MEMARY OD TABLETS 10MG [Concomitant]
     Dosage: 10 MG, QD
     Route: 048
  5. NEODOPASTON COMBINATION TABLETS L100 [Concomitant]
     Dosage: 1 DF, BID
     Route: 048
  6. LIXIANA TABLETS [Suspect]
     Active Substance: EDOXABAN TOSILATE MONOHYDRATE
     Dosage: 15 MG, QD
     Route: 065
     Dates: start: 20160224
  7. MAGMITT [Concomitant]
     Active Substance: MAGNESIUM OXIDE
     Dosage: 990 MG, TID
     Route: 048
  8. VASOLAN                            /00014302/ [Concomitant]
     Active Substance: VERAPAMIL HYDROCHLORIDE
     Dosage: 80 MG, BID
     Route: 048

REACTIONS (2)
  - Gastric ulcer haemorrhage [Recovered/Resolved]
  - Gastric cancer [Fatal]

NARRATIVE: CASE EVENT DATE: 20160212
